FAERS Safety Report 24388402 (Version 1)
Quarter: 2024Q4

REPORT INFORMATION
  Report Type: Spontaneous
  Country: US (occurrence: US)
  Receive Date: 20241002
  Receipt Date: 20241002
  Transmission Date: 20250115
  Serious: Yes (Life-Threatening, Hospitalization, Other)
  Sender: DR REDDYS
  Company Number: None

PATIENT
  Age: 14 Year
  Sex: Male
  Weight: 101.5 kg

DRUGS (4)
  1. DEXTROAMPHETAMINE [Suspect]
     Active Substance: DEXTROAMPHETAMINE
     Indication: Product used for unknown indication
     Dosage: 30 TABLETS OF DEXTROAMPHETAMINE
     Route: 048
  2. MELOXICAM [Suspect]
     Active Substance: MELOXICAM
     Indication: Product used for unknown indication
     Dosage: 2 TABLETS OF MELOXICAM
     Route: 048
  3. IBUPROFEN [Suspect]
     Active Substance: IBUPROFEN
     Indication: Abdominal pain
     Dosage: TREATED WITH IBUPROFEN FOR ABDOMINAL PAIN/UNKNOWN AMOUNT OF IBUPROFEN
     Route: 048
  4. ASPIRIN [Suspect]
     Active Substance: ASPIRIN
     Indication: Product used for unknown indication
     Dosage: 15 TO 20 TABLETS
     Route: 048

REACTIONS (7)
  - Metabolic alkalosis [Unknown]
  - Suicide attempt [Unknown]
  - Hypokalaemia [Unknown]
  - Analgesic drug level increased [Unknown]
  - Intentional overdose [Unknown]
  - Gastric ulcer [Unknown]
  - Ileal ulcer [Unknown]
